FAERS Safety Report 16195834 (Version 2)
Quarter: 2019Q2

REPORT INFORMATION
  Report Type: Spontaneous
  Country: US (occurrence: US)
  Receive Date: 20190415
  Receipt Date: 20190506
  Transmission Date: 20190711
  Serious: Yes (Hospitalization, Other)
  Sender: FDA-Public Use
  Company Number: US-JAZZ-2019-US-005073

PATIENT
  Age: 30 Year
  Sex: Male

DRUGS (1)
  1. XYREM [Suspect]
     Active Substance: SODIUM OXYBATE
     Indication: PRODUCT USED FOR UNKNOWN INDICATION
     Dosage: UNKNOWN DOSE
     Route: 048

REACTIONS (18)
  - Drug dependence [Recovered/Resolved]
  - Electrocardiogram QT prolonged [Recovered/Resolved]
  - Joint dislocation [Not Recovered/Not Resolved]
  - Confusional state [Recovered/Resolved]
  - Alkalosis [Recovered/Resolved]
  - Cervical vertebral fracture [Not Recovered/Not Resolved]
  - Withdrawal syndrome [Recovered/Resolved]
  - Chest X-ray abnormal [Unknown]
  - Agitation [Recovered/Resolved]
  - Atelectasis [Unknown]
  - Depressed level of consciousness [Recovered/Resolved]
  - Drug abuse [Unknown]
  - Electrolyte imbalance [Recovered/Resolved]
  - Aggression [Recovered/Resolved]
  - Hyperventilation [Recovered/Resolved]
  - Respiratory failure [Unknown]
  - Pulmonary congestion [Unknown]
  - Blood creatine phosphokinase MB increased [Recovered/Resolved]
